FAERS Safety Report 7706041-0 (Version None)
Quarter: 2011Q3

REPORT INFORMATION
  Report Type: 
  Country: None (occurrence: None)
  Receive Date: 20110824
  Receipt Date: 20110819
  Transmission Date: 20111222
  Serious: Yes (Death, Hospitalization, Other)
  Sender: FDA-Public Use
  Company Number: PHHY2011CO58719

PATIENT
  Sex: Male

DRUGS (7)
  1. OMEPRAZOLE [Concomitant]
  2. OXYGEN THERAPY [Concomitant]
  3. TIROXINA [Concomitant]
  4. OXYCODONE HCL [Concomitant]
  5. AFINITOR [Suspect]
     Indication: RENAL CELL CARCINOMA
     Dosage: 1 DF, DAILY
     Route: 048
     Dates: start: 20110301, end: 20110626
  6. RADIATION [Concomitant]
  7. MORPHINE [Concomitant]

REACTIONS (13)
  - DYSPNOEA [None]
  - TACHYPNOEA [None]
  - METASTASES TO CENTRAL NERVOUS SYSTEM [None]
  - LOSS OF CONSCIOUSNESS [None]
  - ANAEMIA [None]
  - PAIN [None]
  - DISORIENTATION [None]
  - BALANCE DISORDER [None]
  - MUSCULAR WEAKNESS [None]
  - TACHYCARDIA [None]
  - METASTASES TO LUNG [None]
  - METASTASES TO LIVER [None]
  - DECREASED APPETITE [None]
